FAERS Safety Report 7660369-1 (Version None)
Quarter: 2011Q3

REPORT INFORMATION
  Report Type: 
  Country: None (occurrence: None)
  Receive Date: 20110805
  Receipt Date: 20110720
  Transmission Date: 20111222
  Serious: Yes (Hospitalization)
  Sender: FDA-Public Use
  Company Number: DE-GENENTECH-322391

PATIENT
  Sex: Female
  Weight: 105 kg

DRUGS (7)
  1. RITUXIMAB [Suspect]
     Indication: RHEUMATOID ARTHRITIS
     Dosage: 1000 MG, UNK
     Route: 042
     Dates: start: 20110224
  2. PREDNISOLONE [Concomitant]
     Indication: RHEUMATOID ARTHRITIS
     Dosage: UNK
  3. VALORON [Concomitant]
     Indication: PRODUCT USED FOR UNKNOWN INDICATION
     Dosage: 50 MG, UNK
     Dates: start: 20110201
  4. METHOTREXATE [Concomitant]
     Indication: RHEUMATOID ARTHRITIS
     Dosage: 7.5 MG, UNK
     Route: 048
     Dates: start: 20110201
  5. CALCIUM ACETATE [Concomitant]
     Indication: PRODUCT USED FOR UNKNOWN INDICATION
     Dosage: 2500 MG, UNK
     Route: 048
     Dates: start: 20110201
  6. FOLIC ACID [Concomitant]
     Indication: FOLATE DEFICIENCY
     Dosage: 5 MG, UNK
     Route: 048
     Dates: start: 20110201
  7. VITAMIN D [Concomitant]
     Indication: PRODUCT USED FOR UNKNOWN INDICATION
     Dosage: 800 MG, UNK
     Dates: start: 20110201

REACTIONS (5)
  - ATRIAL FIBRILLATION [None]
  - CARDIAC FAILURE [None]
  - TACHYARRHYTHMIA [None]
  - DRY MOUTH [None]
  - PRODUCTIVE COUGH [None]
